FAERS Safety Report 5567871-7 (Version None)
Quarter: 2007Q4

REPORT INFORMATION
  Report Type: 
  Country: None (occurrence: None)
  Receive Date: 20071220
  Receipt Date: 20071210
  Transmission Date: 20080405
  Serious: Yes (Hospitalization)
  Sender: FDA-Public Use
  Company Number: US-ELI_LILLY_AND_COMPANY-US200708001009

PATIENT
  Sex: Male
  Weight: 130.16 kg

DRUGS (1)
  1. ZYPREXA [Suspect]
     Dates: start: 20050101, end: 20070101

REACTIONS (4)
  - GLUCOSE TOLERANCE IMPAIRED [None]
  - HYPERTENSION [None]
  - METABOLIC DISORDER [None]
  - OBESITY [None]
